FAERS Safety Report 8100527-5 (Version None)
Quarter: 2012Q1

REPORT INFORMATION
  Report Type: 
  Country: None (occurrence: None)
  Receive Date: 20120129
  Receipt Date: 20111110
  Transmission Date: 20120608
  Serious: No
  Sender: FDA-Public Use
  Company Number: US-ABBOTT-11P-163-0873338-00

PATIENT
  Age: 61 Year
  Sex: Female

DRUGS (5)
  1. HUMIRA [Suspect]
     Indication: CROHN'S DISEASE
     Dates: start: 20111013
  2. AVINZA [Concomitant]
     Indication: ARTHRALGIA
  3. AVINZA [Concomitant]
     Indication: BONE PAIN
     Dosage: DAILY
  4. NEURONTIN [Concomitant]
     Indication: HYPOAESTHESIA
     Dosage: DAILY
  5. NEURONTIN [Concomitant]
     Indication: PARAESTHESIA

REACTIONS (3)
  - INJECTION SITE DISCOLOURATION [None]
  - ABDOMINAL DISTENSION [None]
  - INJECTION SITE PAIN [None]
